FAERS Safety Report 14691615 (Version 2)
Quarter: 2018Q4

REPORT INFORMATION
  Report Type: Report from Study
  Country: US (occurrence: US)
  Receive Date: 20180328
  Receipt Date: 20181207
  Transmission Date: 20190204
  Serious: Yes (Death, Other)
  Sender: FDA-Public Use
  Company Number: US-ROCHE-2096304

PATIENT
  Age: 70 Year

DRUGS (1)
  1. BEVACIZUMAB. [Suspect]
     Active Substance: BEVACIZUMAB
     Indication: PROSTATE CANCER
     Route: 042

REACTIONS (4)
  - Death [Fatal]
  - Haemorrhage [Recovered/Resolved]
  - Cerebral ischaemia [Recovered/Resolved]
  - Oesophageal perforation [Unknown]

NARRATIVE: CASE EVENT DATE: 20080118
